FAERS Safety Report 9803680 (Version 1)
Quarter: 2014Q1

REPORT INFORMATION
  Report Type: Spontaneous
  Country: US (occurrence: US)
  Receive Date: 20140108
  Receipt Date: 20140108
  Transmission Date: 20141002
  Serious: No
  Sender: FDA-Public Use
  Company Number: US-GLAXOSMITHKLINE-A1023081A

PATIENT
  Age: 68 Year
  Sex: Female

DRUGS (9)
  1. LOVAZA [Suspect]
     Indication: BLOOD CHOLESTEROL INCREASED
     Dosage: 4CAP PER DAY
     Route: 048
     Dates: start: 2005, end: 201304
  2. CRESTOR [Concomitant]
  3. SYNTHROID [Concomitant]
  4. CLONAZEPAM [Concomitant]
  5. TIZANIDINE [Concomitant]
  6. LORTAB [Concomitant]
  7. NEXIUM [Concomitant]
  8. LAXATIVE [Concomitant]
  9. FACE CREAM [Concomitant]

REACTIONS (6)
  - Abdominal pain upper [Recovered/Resolved]
  - Malaise [Recovered/Resolved]
  - Medication residue present [Recovered/Resolved]
  - Irritable bowel syndrome [Recovered/Resolved]
  - Pyrexia [Recovered/Resolved]
  - Product quality issue [Recovered/Resolved]
